FAERS Safety Report 16921766 (Version 1)
Quarter: 2019Q4

REPORT INFORMATION
  Report Type: Spontaneous
  Country: PL (occurrence: PL)
  Receive Date: 20191015
  Receipt Date: 20191015
  Transmission Date: 20200122
  Serious: Yes (Other)
  Sender: FDA-Public Use
  Company Number: PL-SHIRE-PL201933127

PATIENT

DRUGS (12)
  1. HUMAN CHORIONIC GONADOTROPIN [Suspect]
     Active Substance: GONADOTROPHIN, CHORIONIC
     Indication: OOCYTE HARVEST
     Dosage: 125 MICROGRAM, UNKNOWN , UNSPECIFIED REDUCTION OF THE RHCG DOSEUNK
     Route: 065
  2. HETASTARCH. [Suspect]
     Active Substance: HETASTARCH
     Indication: PRODUCT USED FOR UNKNOWN INDICATION
     Dosage: UNK
     Route: 065
  3. CABERGOLINE. [Suspect]
     Active Substance: CABERGOLINE
     Indication: PROPHYLAXIS
     Dosage: 0.5 MILLIGRAM, QD
     Route: 065
  4. FOLLITROPIN BETA [Suspect]
     Active Substance: FOLLITROPIN
     Indication: OVULATION INDUCTION
     Dosage: 1075 INTERNATIONAL UNIT, 1X/DAY:QD
     Route: 065
  5. ACETIC ACID. [Suspect]
     Active Substance: ACETIC ACID
     Indication: CONTROLLED OVARIAN STIMULATION
     Dosage: UNK
     Route: 065
  6. PROGESTERONE. [Suspect]
     Active Substance: PROGESTERONE
     Indication: PRODUCT USED FOR UNKNOWN INDICATION
     Dosage: UNK
     Route: 067
  7. L-THYROXINE [LEVOTHYROXINE SODIUM] [Concomitant]
     Active Substance: LEVOTHYROXINE SODIUM
     Indication: HYPOTHYROIDISM
  8. ENOXAPARIN SODIUM. [Suspect]
     Active Substance: ENOXAPARIN SODIUM
     Indication: CONTROLLED OVARIAN STIMULATION
     Dosage: UNK
     Route: 065
  9. PREDNISONE. [Suspect]
     Active Substance: PREDNISONE
     Indication: CONTROLLED OVARIAN STIMULATION
     Dosage: UNK
     Route: 065
  10. FOLIC ACID. [Suspect]
     Active Substance: FOLIC ACID
     Indication: CONTROLLED OVARIAN STIMULATION
     Dosage: UNK
     Route: 065
  11. TRIPTORELIN [Suspect]
     Active Substance: TRIPTORELIN
     Indication: OVULATION INDUCTION
     Dosage: DAILY DOSE OF 0.1 MG
     Route: 065
  12. HUMAN ALBUMIN [Suspect]
     Active Substance: ALBUMIN HUMAN
     Indication: PRODUCT USED FOR UNKNOWN INDICATION
     Dosage: UNK

REACTIONS (2)
  - Ovarian hyperstimulation syndrome [Recovered/Resolved]
  - Maternal exposure before pregnancy [Recovered/Resolved]
